FAERS Safety Report 5302900-7 (Version None)
Quarter: 2007Q2

REPORT INFORMATION
  Report Type: 
  Country: None (occurrence: None)
  Receive Date: 20070420
  Receipt Date: 20070411
  Transmission Date: 20071010
  Serious: Yes (Other)
  Sender: FDA-Public Use
  Company Number: CA-JNJFOC-20070106339

PATIENT
  Sex: Female

DRUGS (22)
  1. REMICADE [Suspect]
     Route: 042
  2. REMICADE [Suspect]
     Route: 042
  3. REMICADE [Suspect]
     Route: 042
  4. REMICADE [Suspect]
     Route: 042
  5. REMICADE [Suspect]
     Route: 042
  6. REMICADE [Suspect]
     Route: 042
  7. REMICADE [Suspect]
     Route: 042
  8. REMICADE [Suspect]
     Route: 042
  9. REMICADE [Suspect]
     Route: 042
  10. REMICADE [Suspect]
     Route: 042
  11. REMICADE [Suspect]
     Route: 042
  12. REMICADE [Suspect]
     Route: 042
  13. REMICADE [Suspect]
     Route: 042
  14. REMICADE [Suspect]
     Route: 042
  15. REMICADE [Suspect]
     Route: 042
  16. REMICADE [Suspect]
     Route: 042
  17. REMICADE [Suspect]
     Indication: CROHN'S DISEASE
     Dosage: 400 MG; 2 DOSES ON UNSPECIFIED DATES
     Route: 042
  18. BENADRYL [Concomitant]
     Indication: PREMEDICATION
     Route: 048
  19. ACETAMINOPHEN [Concomitant]
     Indication: PREMEDICATION
     Route: 048
  20. HYDROCORTISONE [Concomitant]
     Indication: PREMEDICATION
     Route: 042
  21. METHOTREXATE [Concomitant]
  22. FOLIC ACID [Concomitant]

REACTIONS (8)
  - BLOOD PRESSURE INCREASED [None]
  - COUGH [None]
  - DYSPNOEA [None]
  - ERYTHEMA [None]
  - HOT FLUSH [None]
  - INFUSION RELATED REACTION [None]
  - THROAT IRRITATION [None]
  - THROAT TIGHTNESS [None]
